FAERS Safety Report 18486069 (Version 3)
Quarter: 2020Q4

REPORT INFORMATION
  Report Type: Spontaneous
  Country: US (occurrence: US)
  Receive Date: 20201110
  Receipt Date: 20201123
  Transmission Date: 20210114
  Serious: No
  Sender: FDA-Public Use
  Company Number: US-PFIZER INC-2020439085

PATIENT
  Age: 7 Decade
  Sex: Female
  Weight: 70.31 kg

DRUGS (1)
  1. ATORVASTATIN CALCIUM. [Suspect]
     Active Substance: ATORVASTATIN CALCIUM
     Indication: HYPERTENSION
     Dosage: 40 MG, 1X/DAY ((40MG TABLET ONCE A DAY BY MOUTH, IN THE EVENING)
     Route: 048

REACTIONS (1)
  - Drug ineffective [Unknown]
